FAERS Safety Report 21023845 (Version 1)
Quarter: 2022Q2

REPORT INFORMATION
  Report Type: Spontaneous
  Country: US (occurrence: None)
  Receive Date: 20220629
  Receipt Date: 20220629
  Transmission Date: 20220720
  Serious: No
  Sender: FDA-Public Use
  Company Number: None

PATIENT
  Sex: Female

DRUGS (1)
  1. STELARA [Suspect]
     Active Substance: USTEKINUMAB
     Indication: Inflammatory bowel disease
     Dosage: OTHER QUANTITY : 90MG/1ML ;?FREQUENCY : DAILY;?
     Route: 058
     Dates: start: 20211124

REACTIONS (1)
  - Condition aggravated [None]
